FAERS Safety Report 12966365 (Version 1)
Quarter: 2016Q4

REPORT INFORMATION
  Report Type: Spontaneous
  Country: US (occurrence: US)
  Receive Date: 20161121
  Receipt Date: 20161121
  Transmission Date: 20170207
  Serious: Yes (Other)
  Sender: FDA-Public Use
  Company Number: None

PATIENT
  Sex: Female
  Weight: 54 kg

DRUGS (17)
  1. EPCLUSA [Suspect]
     Active Substance: SOFOSBUVIR\VELPATASVIR
     Indication: HEPATITIS C
     Route: 048
     Dates: start: 20161028
  2. LANTUS SOLOSTAR [Concomitant]
     Active Substance: INSULIN GLARGINE
  3. TYLENOL SINUS CONGESTION [Concomitant]
  4. VITAMIN D [Concomitant]
     Active Substance: CHOLECALCIFEROL
  5. BACTRIM [Concomitant]
     Active Substance: SULFAMETHOXAZOLE\TRIMETHOPRIM
  6. KIONEX [Concomitant]
     Active Substance: SODIUM POLYSTYRENE SULFONATE
  7. RIBAVIRIN. [Concomitant]
     Active Substance: RIBAVIRIN
  8. STARLIX [Concomitant]
     Active Substance: NATEGLINIDE
  9. CLARITIN [Concomitant]
     Active Substance: LORATADINE
  10. PROGRAF [Concomitant]
     Active Substance: TACROLIMUS\TACROLIMUS ANHYDROUS
  11. METAMUCIL [Concomitant]
     Active Substance: PLANTAGO SEED
  12. OMEPRAZOLE. [Concomitant]
     Active Substance: OMEPRAZOLE
  13. URSODIOL. [Concomitant]
     Active Substance: URSODIOL
  14. MYFORTIC [Concomitant]
     Active Substance: MYCOPHENOLATE SODIUM
  15. SYNTHROID [Concomitant]
     Active Substance: LEVOTHYROXINE SODIUM
  16. MULTIVITAMINS [Concomitant]
     Active Substance: VITAMINS
  17. MAGNESIUM [Concomitant]
     Active Substance: MAGNESIUM

REACTIONS (4)
  - Joint stiffness [None]
  - Stomatitis [None]
  - Headache [None]
  - Musculoskeletal stiffness [None]
